FAERS Safety Report 7088010-X (Version None)
Quarter: 2010Q4

REPORT INFORMATION
  Report Type: 
  Country: None (occurrence: None)
  Receive Date: 20101108
  Receipt Date: 20101029
  Transmission Date: 20110411
  Serious: No
  Sender: FDA-Public Use
  Company Number: US-B.I. PHARMACEUTICALS,INC./RIDGEFIELD-2010-BP-12217BP

PATIENT
  Sex: Male

DRUGS (2)
  1. SPIRIVA [Suspect]
     Indication: CARDIAC DISORDER
     Dosage: 18 MCG
     Route: 055
     Dates: start: 20100101
  2. FLOVENT [Concomitant]
     Indication: CARDIAC DISORDER
     Route: 055

REACTIONS (2)
  - COUGH [None]
  - DRUG INEFFECTIVE [None]
